FAERS Safety Report 24272565 (Version 1)
Quarter: 2024Q3

REPORT INFORMATION
  Report Type: Report from Study
  Country: CA (occurrence: CA)
  Receive Date: 20240902
  Receipt Date: 20240902
  Transmission Date: 20241016
  Serious: Yes (Other)
  Sender: TAKEDA
  Company Number: CA-TAKEDA-2024TUS086858

PATIENT
  Sex: Female

DRUGS (4)
  1. VEDOLIZUMAB [Suspect]
     Active Substance: VEDOLIZUMAB
     Indication: Crohn^s disease
     Dosage: 300 MILLIGRAM
     Route: 042
     Dates: start: 20150716
  2. DAPSONE [Concomitant]
     Active Substance: DAPSONE
     Indication: Rash
     Dosage: UNK UNK, QD
  3. CHLORTHALIDONE [Concomitant]
     Active Substance: CHLORTHALIDONE
     Dosage: UNK
     Dates: start: 20200628
  4. FERRITIN [Concomitant]
     Active Substance: FERRITIN
     Dosage: UNK
     Dates: start: 20230516

REACTIONS (2)
  - Nephrolithiasis [Recovered/Resolved]
  - Cystitis [Recovered/Resolved]
